FAERS Safety Report 5423908-7 (Version None)
Quarter: 2007Q3

REPORT INFORMATION
  Report Type: 
  Country: None (occurrence: None)
  Receive Date: 20070823
  Receipt Date: 20070820
  Transmission Date: 20080115
  Serious: Yes (Hospitalization)
  Sender: FDA-Public Use
  Company Number: US-ASTRAZENECA-2007UW19996

PATIENT
  Age: 26 Year
  Sex: Male
  Weight: 79.4 kg

DRUGS (7)
  1. SEROQUEL [Suspect]
     Indication: AFFECTIVE DISORDER
     Route: 048
  2. SEROQUEL [Suspect]
     Indication: SLEEP DISORDER
     Route: 048
  3. LITHIUM CARBONATE [Concomitant]
  4. EFFEXOR [Concomitant]
  5. LAMICTAL [Concomitant]
  6. PERCOCET [Concomitant]
  7. MOBIC [Concomitant]

REACTIONS (3)
  - ANOREXIA [None]
  - SWELLING [None]
  - WEIGHT INCREASED [None]
